FAERS Safety Report 8921812 (Version 1)
Quarter: 2012Q4

REPORT INFORMATION
  Report Type: Report from Study
  Country: CN (occurrence: CN)
  Receive Date: 20121121
  Receipt Date: 20121121
  Transmission Date: 20130627
  Serious: Yes (Hospitalization)
  Sender: FDA-Public Use
  Company Number: CN-TEVA-369382ISR

PATIENT
  Age: 46 Year
  Sex: Male
  Weight: 50 kg

DRUGS (1)
  1. BENDAMUSTINE [Suspect]
     Dates: start: 20121024, end: 20121025

REACTIONS (1)
  - White blood cell count increased [Recovered/Resolved]
